FAERS Safety Report 9624835 (Version 2)
Quarter: 2013Q4

REPORT INFORMATION
  Report Type: Report from Study
  Country: DE (occurrence: DE)
  Receive Date: 20131015
  Receipt Date: 20131015
  Transmission Date: 20140711
  Serious: No
  Sender: FDA-Public Use
  Company Number: PHHY2012DE094395

PATIENT
  Sex: Male
  Weight: 81 kg

DRUGS (12)
  1. AMN107 [Suspect]
     Indication: CHRONIC MYELOID LEUKAEMIA
     Dosage: 800 MG, PER DAY
     Route: 048
     Dates: start: 20110715, end: 20110816
  2. AMN107 [Suspect]
     Dosage: 800 MG, PER DAY
     Route: 048
     Dates: start: 20110901
  3. SOTALOL [Concomitant]
     Dates: start: 20110723
  4. CARBIMAZOLE [Concomitant]
     Dosage: 10 MG, UNK
     Dates: start: 20110715
  5. LEVOFLOXACIN [Concomitant]
     Dates: start: 20110811, end: 20110822
  6. RIVOTRIL [Concomitant]
     Dosage: 0.5 MG, UNK
     Dates: start: 201109, end: 20111007
  7. VASOMOTAL [Concomitant]
     Dates: start: 20111206, end: 20120531
  8. PANTOZOL [Concomitant]
     Dosage: 20 MG, UNK
     Dates: start: 20111206, end: 20120531
  9. TAMSULOSIN [Concomitant]
     Dosage: 0.4 MG, UNK
     Dates: start: 20111206
  10. CARBAMAZEPIN [Concomitant]
     Dosage: 0.5 MG, UNK
     Dates: start: 20120601, end: 20120615
  11. OMEPRAZOL [Concomitant]
     Dosage: 20 MG, UNK
     Dates: start: 20120601
  12. ETILEFRIL [Concomitant]
     Dosage: 5 MG, PRN
     Dates: start: 20120601

REACTIONS (12)
  - Mucosal dryness [Recovered/Resolved]
  - Fatigue [Recovered/Resolved]
  - Dizziness [Recovered/Resolved]
  - Headache [Recovered/Resolved]
  - Dry skin [Recovered/Resolved]
  - Alopecia [Recovered/Resolved]
  - Pruritus [Recovered/Resolved]
  - Decreased appetite [Recovered/Resolved]
  - Gamma-glutamyltransferase increased [Recovered/Resolved]
  - Syncope [Recovered/Resolved]
  - Blood bilirubin increased [Unknown]
  - Essential tremor [Not Recovered/Not Resolved]
